FAERS Safety Report 7372759-5 (Version None)
Quarter: 2011Q1

REPORT INFORMATION
  Report Type: 
  Country: None (occurrence: None)
  Receive Date: 20110316
  Receipt Date: 20110305
  Transmission Date: 20110831
  Serious: Yes (Death, Hospitalization, Other)
  Sender: FDA-Public Use
  Company Number: 2011AP000419

PATIENT
  Age: 13 Year
  Sex: Male

DRUGS (1)
  1. DESMOPRESSIN(DESMOPRESSIN) DOSE, FORM, ROUTE AND FREQUENCY UNKNOWN [Suspect]
     Indication: HYPOPITUITARISM

REACTIONS (4)
  - DEMYELINATION [None]
  - HYPONATRAEMIA [None]
  - BRAIN OEDEMA [None]
  - CARDIO-RESPIRATORY ARREST [None]
